FAERS Safety Report 4388092-X (Version None)
Quarter: 2004Q2

REPORT INFORMATION
  Report Type: 
  Country: None (occurrence: None)
  Receive Date: 20040629
  Receipt Date: 20040629
  Transmission Date: 20050107
  Serious: Yes (Life-Threatening, Disabling)
  Sender: FDA-Public Use
  Company Number: None

PATIENT
  Age: 28 Year
  Sex: Female
  Weight: 99.7913 kg

DRUGS (1)
  1. XENICAL [Suspect]
     Indication: BREAST CANCER
     Dosage: 1 3 TIMES ORAL
     Route: 048
     Dates: start: 20020501, end: 20030830

REACTIONS (1)
  - BREAST CANCER [None]
